FAERS Safety Report 8720870 (Version 2)
Quarter: 2012Q4

REPORT INFORMATION
  Report Type: 
  Country: US (occurrence: US)
  Receive Date: 20120813
  Receipt Date: 20120906
  Transmission Date: 20130627
  Serious: Yes (Disabling)
  Sender: FDA-Public Use
  Company Number: US-GLAXOSMITHKLINE-A0988783A

PATIENT
  Age: 67 Year
  Sex: Female

DRUGS (10)
  1. DYNACIRC CR [Suspect]
     Indication: HYPERTENSION
     Dosage: 10MG Per day
     Route: 048
     Dates: start: 201101, end: 201207
  2. ISRADIPINE [Suspect]
     Indication: HYPERTENSION
     Route: 048
     Dates: start: 2008, end: 201101
  3. TEKTURNA [Concomitant]
  4. DIOVAN HCTZ [Concomitant]
  5. DILTIAZEM [Concomitant]
  6. CYMBALTA [Concomitant]
  7. LIOTHYRONINE [Concomitant]
  8. CHROMIUM PICOLINATE [Concomitant]
  9. VYTORIN [Concomitant]
  10. COENZYME Q-10 [Concomitant]

REACTIONS (1)
  - Faecal incontinence [Recovering/Resolving]
